FAERS Safety Report 24753546 (Version 1)
Quarter: 2024Q4

REPORT INFORMATION
  Report Type: Spontaneous
  Country: US (occurrence: US)
  Receive Date: 20241219
  Receipt Date: 20241219
  Transmission Date: 20250114
  Serious: Yes (Life-Threatening, Other)
  Sender: PFIZER
  Company Number: US-PFIZER INC-PV202400161891

PATIENT
  Age: 46 Year
  Sex: Female

DRUGS (9)
  1. CYTARABINE [Suspect]
     Active Substance: CYTARABINE
     Indication: Chronic myelomonocytic leukaemia
     Dosage: 20 MG, 2X/DAY
     Route: 058
     Dates: start: 20240329
  2. CYTARABINE [Suspect]
     Active Substance: CYTARABINE
     Dosage: 20 MG, 2X/DAY
     Route: 058
     Dates: start: 202404
  3. CYTARABINE [Suspect]
     Active Substance: CYTARABINE
     Dosage: 20 MG, 2X/DAY
     Route: 058
     Dates: start: 20240503
  4. CLADRIBINE [Suspect]
     Active Substance: CLADRIBINE
     Indication: Chronic myelomonocytic leukaemia
     Dosage: 5 MG/M2
     Dates: start: 20240329
  5. CLADRIBINE [Suspect]
     Active Substance: CLADRIBINE
     Dosage: 5 MG/M2
     Dates: start: 202404
  6. CLADRIBINE [Suspect]
     Active Substance: CLADRIBINE
     Dosage: 5 MG/M2
     Dates: start: 20240503
  7. GILTERITINIB [Suspect]
     Active Substance: GILTERITINIB
     Indication: Chronic myelomonocytic leukaemia
     Dosage: 80 MG, DAILY
     Dates: start: 20240329
  8. GILTERITINIB [Suspect]
     Active Substance: GILTERITINIB
     Dosage: 80 MG, DAILY
     Dates: start: 202404
  9. GILTERITINIB [Suspect]
     Active Substance: GILTERITINIB
     Dosage: 80 MG, DAILY
     Dates: start: 20240503

REACTIONS (2)
  - Delayed haemolytic transfusion reaction [Recovering/Resolving]
  - Haemolytic anaemia [Recovering/Resolving]

NARRATIVE: CASE EVENT DATE: 20240401
